FAERS Safety Report 18433725 (Version 1)
Quarter: 2020Q4

REPORT INFORMATION
  Report Type: Spontaneous
  Country: US (occurrence: US)
  Receive Date: 20201028
  Receipt Date: 20201028
  Transmission Date: 20210114
  Serious: Yes (Other)
  Sender: FDA-Public Use
  Company Number: US-LUPIN PHARMACEUTICALS INC.-2020-02536

PATIENT
  Age: 85 Year
  Sex: Female

DRUGS (2)
  1. NITROFURANTOIN. [Suspect]
     Active Substance: NITROFURANTOIN
     Indication: URINARY TRACT INFECTION
     Dosage: UNK
     Route: 065
  2. NITROFURANTOIN. [Suspect]
     Active Substance: NITROFURANTOIN
     Dosage: UNK (PRESCRIBED AGAIN)
     Route: 065

REACTIONS (9)
  - Chills [Recovering/Resolving]
  - Myalgia [Recovering/Resolving]
  - Rash pruritic [Recovering/Resolving]
  - Eosinophilia [Recovering/Resolving]
  - Drug hypersensitivity [Recovering/Resolving]
  - Interstitial lung disease [Unknown]
  - Fatigue [Recovering/Resolving]
  - Pyrexia [Recovering/Resolving]
  - Arthralgia [Recovered/Resolved]
